FAERS Safety Report 9005520 (Version 1)
Quarter: 2013Q1

REPORT INFORMATION
  Report Type: Spontaneous
  Country: US (occurrence: US)
  Receive Date: 20130109
  Receipt Date: 20130109
  Transmission Date: 20140127
  Serious: Yes (Death, Other)
  Sender: FDA-Public Use
  Company Number: US-009507513-1301USA001530

PATIENT
  Age: 71 Year
  Sex: Male

DRUGS (7)
  1. MONTELUKAST SODIUM [Suspect]
     Dosage: 10 MG, NOCTE
  2. QUININE [Suspect]
     Dosage: 300 MG, PRN HS
  3. SERETIDE [Suspect]
     Dosage: 125 2 PUFFS INHALATION
     Route: 055
  4. SALMETEROL XINAFOATE [Suspect]
     Dosage: 25.0 MICG/DOS INHALATION
     Route: 055
  5. OXYGEN [Suspect]
     Dosage: 2L/MIN - 15 HR
  6. SPIRIVA [Suspect]
     Dosage: 18.0 MICROGRAM, INHALATION
     Route: 055
  7. BECLOMETHASONE DIPROPIONATE [Suspect]
     Dosage: 200 MICROGRAM, INHALATION
     Route: 055

REACTIONS (2)
  - Chronic obstructive pulmonary disease [Fatal]
  - Diarrhoea [Fatal]
